FAERS Safety Report 5678165-3 (Version None)
Quarter: 2008Q1

REPORT INFORMATION
  Report Type: 
  Country: None (occurrence: None)
  Receive Date: 20080320
  Receipt Date: 20080312
  Transmission Date: 20080703
  Serious: Yes (Hospitalization)
  Sender: FDA-Public Use
  Company Number: 2008SP000003

PATIENT
  Age: 68 Year
  Sex: Male
  Weight: 67 kg

DRUGS (7)
  1. TEMOZOLOMIDE [Suspect]
     Indication: GLIOBLASTOMA
     Dosage: 75 MG/M2
     Dates: start: 20071126
  2. DEXAMETHASONE [Suspect]
     Indication: GLIOBLASTOMA
     Dosage: 2 MG; TID; P[O
     Route: 048
     Dates: end: 20080120
  3. HYDROCHLOROTHIAZIDE [Concomitant]
  4. UNAT [Concomitant]
  5. FELODIPINE [Concomitant]
  6. LISINOPRIL [Concomitant]
  7. NEXIUM [Concomitant]

REACTIONS (7)
  - BLOOD GLUCOSE INCREASED [None]
  - DEHYDRATION [None]
  - FATIGUE [None]
  - ILL-DEFINED DISORDER [None]
  - MOBILITY DECREASED [None]
  - NONSPECIFIC REACTION [None]
  - SOMNOLENCE [None]
